FAERS Safety Report 9875973 (Version 1)
Quarter: 2014Q1

REPORT INFORMATION
  Report Type: Spontaneous
  Country: GB (occurrence: None)
  Receive Date: 20140204
  Receipt Date: 20140204
  Transmission Date: 20141002
  Serious: Yes (Hospitalization, Other)
  Sender: FDA-Public Use
  Company Number: AUR-APL-2014-00702

PATIENT
  Age: 23 Year
  Sex: Female

DRUGS (1)
  1. FLUOXETINE (FLUOXETINE) [Suspect]
     Indication: DEPRESSION
     Dosage: 20MG (20MG 1 IN 1D)
     Dates: start: 20131216, end: 20140104

REACTIONS (4)
  - Lip swelling [None]
  - Eye swelling [None]
  - Pain [None]
  - Withdrawal syndrome [None]
